FAERS Safety Report 17511246 (Version 1)
Quarter: 2020Q1

REPORT INFORMATION
  Report Type: Spontaneous
  Country: NL (occurrence: NL)
  Receive Date: 20200306
  Receipt Date: 20200306
  Transmission Date: 20200409
  Serious: Yes (Other)
  Sender: FDA-Public Use
  Company Number: NL-TEVA-2020-NL-1195545

PATIENT
  Age: 41 Year
  Sex: Male
  Weight: 92.5 kg

DRUGS (6)
  1. MACROGOL/ZOUTEN [Concomitant]
     Dosage: DRANK
  2. NADROPARINE [Concomitant]
     Active Substance: NADROPARIN
     Dosage: INJECTION FLUID, 9500 I/ML (UNITS PER MILLILITER)
  3. COLECALCIFEROL [Concomitant]
     Active Substance: CHOLECALCIFEROL
     Dosage: CAPSULE, 800 UNITS
  4. CLOZAPINE. [Suspect]
     Active Substance: CLOZAPINE
     Dosage: TABLET 100 MG + TABLET 25 MG,
     Route: 065
     Dates: start: 20200117
  5. PRIADEL (LITHIUMCARBONAAT) [Concomitant]
     Dosage: TABLET WITH REGULATED RELEASE, 400 MG (MILLIGRAMS)
  6. CLONAZEPAM. [Concomitant]
     Active Substance: CLONAZEPAM
     Dosage: TABLET, 0,5 MG (MILLIGRAM)

REACTIONS (8)
  - Vomiting [Recovered/Resolved]
  - Musculoskeletal stiffness [Recovering/Resolving]
  - Confusional state [Recovering/Resolving]
  - Diarrhoea [Not Recovered/Not Resolved]
  - Pyrexia [Not Recovered/Not Resolved]
  - Myalgia [Recovering/Resolving]
  - Renal impairment [Recovering/Resolving]
  - Tremor [Recovering/Resolving]

NARRATIVE: CASE EVENT DATE: 20200131
